FAERS Safety Report 15828698 (Version 1)
Quarter: 2019Q1

REPORT INFORMATION
  Report Type: Spontaneous
  Country: US (occurrence: US)
  Receive Date: 20190115
  Receipt Date: 20190115
  Transmission Date: 20190417
  Serious: Yes (Other)
  Sender: FDA-Public Use
  Company Number: US-REGENERON PHARMACEUTICALS, INC.-2018-18922

PATIENT

DRUGS (1)
  1. EYLEA [Suspect]
     Active Substance: AFLIBERCEPT
     Indication: PRODUCT USED FOR UNKNOWN INDICATION
     Dosage: UNK

REACTIONS (8)
  - Retinal detachment [Unknown]
  - Eye pain [Unknown]
  - Adverse drug reaction [Unknown]
  - Visual impairment [Unknown]
  - Retinal artery occlusion [Unknown]
  - Ocular hyperaemia [Unknown]
  - Endophthalmitis [Unknown]
  - Photophobia [Unknown]
